FAERS Safety Report 23313628 (Version 1)
Quarter: 2023Q4

REPORT INFORMATION
  Report Type: Spontaneous
  Country: US (occurrence: US)
  Receive Date: 20231219
  Receipt Date: 20231219
  Transmission Date: 20240110
  Serious: No
  Sender: FDA-Public Use
  Company Number: US-BRISTOL-MYERS SQUIBB COMPANY-2023-183234

PATIENT
  Age: 44 Year
  Sex: Female
  Weight: 61.23 kg

DRUGS (1)
  1. SPRYCEL [Suspect]
     Active Substance: DASATINIB
     Indication: Chronic myeloid leukaemia
     Route: 048
     Dates: start: 20221221

REACTIONS (4)
  - Musculoskeletal chest pain [Unknown]
  - Feeling abnormal [Unknown]
  - Abdominal pain [Unknown]
  - Blood urine present [Unknown]
